FAERS Safety Report 9880253 (Version 1)
Quarter: 2014Q1

REPORT INFORMATION
  Report Type: Spontaneous
  Country: US (occurrence: US)
  Receive Date: 20140207
  Receipt Date: 20140207
  Transmission Date: 20141002
  Serious: Yes (Death, Life-Threatening, Hospitalization)
  Sender: FDA-Public Use
  Company Number: US-BRISTOL-MYERS SQUIBB COMPANY-20095881

PATIENT
  Age: 79 Year
  Sex: Female

DRUGS (2)
  1. ELIQUIS [Suspect]
     Dosage: ONE DOSE
  2. FUROSEMIDE [Concomitant]

REACTIONS (4)
  - Haemorrhage [Fatal]
  - Loss of consciousness [Unknown]
  - Tremor [Unknown]
  - Blood urine present [Unknown]
